FAERS Safety Report 7307311-0 (Version None)
Quarter: 2011Q1

REPORT INFORMATION
  Report Type: 
  Country: None (occurrence: None)
  Receive Date: 20110223
  Receipt Date: 20110211
  Transmission Date: 20110831
  Serious: Yes (Other)
  Sender: FDA-Public Use
  Company Number: US-RB-021138-11

PATIENT
  Age: 41 Year
  Sex: Male

DRUGS (1)
  1. MUCINEX D [Suspect]
     Route: 048

REACTIONS (1)
  - EPISTAXIS [None]
